FAERS Safety Report 18245297 (Version 3)
Quarter: 2021Q1

REPORT INFORMATION
  Report Type: Spontaneous
  Country: JP (occurrence: JP)
  Receive Date: 20200909
  Receipt Date: 20210121
  Transmission Date: 20210419
  Serious: Yes (Death)
  Sender: FDA-Public Use
  Company Number: JP-REGENERON PHARMACEUTICALS, INC.-2020-47256

PATIENT

DRUGS (15)
  1. EYLEA [Suspect]
     Active Substance: AFLIBERCEPT
     Indication: GLAUCOMA
     Dosage: 0.05 ML, ONCE, LEFT EYE
     Route: 031
     Dates: start: 20200618, end: 20200618
  2. CRAVIT [Concomitant]
     Active Substance: LEVOFLOXACIN
     Indication: PRODUCT USED FOR UNKNOWN INDICATION
     Dosage: LEFT EYE, 4 TIMES DAILY
     Dates: start: 20200618, end: 20200622
  3. AZILVA [Concomitant]
     Active Substance: AZILSARTAN KAMEDOXOMIL
     Indication: PRODUCT USED FOR UNKNOWN INDICATION
     Dosage: DAILY DOSE 20 MG
     Dates: end: 20200622
  4. ACETAZOLAMIDE. [Concomitant]
     Active Substance: ACETAZOLAMIDE
     Indication: PRODUCT USED FOR UNKNOWN INDICATION
  5. AMLODIN [Concomitant]
     Active Substance: AMLODIPINE BESYLATE
     Indication: PRODUCT USED FOR UNKNOWN INDICATION
     Dosage: DAILY DOSE 10 MG
     Dates: end: 20200622
  6. EMPAGLIFLOZIN W/LINAGLIPTIN [Concomitant]
     Active Substance: EMPAGLIFLOZIN\LINAGLIPTIN
     Indication: PRODUCT USED FOR UNKNOWN INDICATION
     Dosage: DAILY DOSE 1 DF
     Dates: end: 20200622
  7. DIAMOX SANKEN [ACETAZOLAMIDE SODIUM] [Suspect]
     Active Substance: ACETAZOLAMIDE SODIUM
     Dosage: 1000MG, QOD, DAILY 4 TABLETS
     Route: 048
     Dates: start: 20200621, end: 20200626
  8. DIAMOX SANKEN [ACETAZOLAMIDE SODIUM] [Suspect]
     Active Substance: ACETAZOLAMIDE SODIUM
     Indication: GLAUCOMA
     Dosage: 1500 MG, QOD, DAILY 6 TABLETS
     Route: 048
     Dates: start: 20200618, end: 20200620
  9. BAYASPIRIN [Concomitant]
     Active Substance: ASPIRIN
     Indication: MYOCARDIAL INFARCTION
     Dosage: DAILY DOSE 100 MG
     Dates: end: 20200622
  10. GLANATEC [Suspect]
     Active Substance: RIPASUDIL HYDROCHLORIDE DIHYDRATE
     Dosage: LEFT EYE, 4 TIMES DAILY
     Route: 047
     Dates: start: 20200618, end: 20200622
  11. ATORVASTATIN [Concomitant]
     Active Substance: ATORVASTATIN
     Indication: PRODUCT USED FOR UNKNOWN INDICATION
     Dosage: DAILY DOSE 10 MG
     Dates: end: 20200622
  12. GLIMEPIRIDE. [Concomitant]
     Active Substance: GLIMEPIRIDE
     Indication: PRODUCT USED FOR UNKNOWN INDICATION
     Dosage: DAILY DOSE 0.5 MG
     Dates: end: 20200622
  13. GLANATEC [Suspect]
     Active Substance: RIPASUDIL HYDROCHLORIDE DIHYDRATE
     Indication: GLAUCOMA
     Dosage: 1 GTT, QOD
     Route: 047
     Dates: start: 20200618, end: 20200715
  14. ESOMEPRAZOLE. [Concomitant]
     Active Substance: ESOMEPRAZOLE MAGNESIUM
     Indication: PRODUCT USED FOR UNKNOWN INDICATION
     Dosage: DAILY DOSE 20 MG
     Dates: end: 20200622
  15. METGLUCO [Concomitant]
     Active Substance: METFORMIN HYDROCHLORIDE
     Indication: PRODUCT USED FOR UNKNOWN INDICATION
     Dosage: DAILY DOSE 1500 MG
     Dates: end: 20200622

REACTIONS (2)
  - Cerebral infarction [Fatal]
  - Mallory-Weiss syndrome [Fatal]

NARRATIVE: CASE EVENT DATE: 20200618
